FAERS Safety Report 8089068 (Version 4)
Quarter: 2013Q3

REPORT INFORMATION
  Report Type: Report from Study
  Country: US (occurrence: US)
  Receive Date: 20110812
  Receipt Date: 20130910
  Transmission Date: 20140515
  Serious: Yes (Hospitalization)
  Sender: FDA-Public Use
  Company Number: PHEH2011US00882

PATIENT
  Age: 24 Year
  Sex: Male
  Weight: 42.59 kg

DRUGS (16)
  1. TOBI [Suspect]
     Indication: CYSTIC FIBROSIS
     Dosage: 300 MG, BID
     Dates: start: 20040820
  2. TOBI [Suspect]
     Dosage: 300 MG, BID (28 DAYS ON AND 28 DAYS OFF)
     Dates: start: 20090114
  3. PULMOZYME [Concomitant]
     Dosage: 2.5 MG, QD
     Dates: start: 20040820
  4. AZITHROMYCIN [Concomitant]
     Dosage: 500 MG, UNK
     Dates: start: 20040820
  5. ADVAIR [Concomitant]
     Dosage: 1 DF, BID
     Dates: start: 20051019
  6. ACAPELLA [Concomitant]
     Dosage: 2 TIMES, QD
     Dates: start: 20080318
  7. NUTREN TUBE FEEDS [Concomitant]
     Dosage: 4 DF, QD (PER NIGHT)
     Dates: start: 20090113
  8. ZYRTEC [Concomitant]
     Dosage: 10 MG, QD
     Route: 048
     Dates: start: 20090113
  9. FLONASE [Concomitant]
     Dosage: UNK UKN (2 SPRAYS EACH NOSTRIL), QD
     Dates: start: 20110120
  10. ALBUTEROL [Concomitant]
     Dosage: 2 DF, BID
     Dates: start: 20110120
  11. MULTIVITAMIN [Concomitant]
     Dosage: 1 DF, BID
     Route: 048
     Dates: start: 20110120
  12. ZENPEP [Concomitant]
     Dosage: 20-5 WITH MEALS AND TUBE FEEDS, 4 WITH SNACKS
     Route: 048
     Dates: start: 20110120
  13. PAXIL [Concomitant]
     Dosage: 10 MG, QD
     Route: 048
     Dates: start: 20110722
  14. CLONAZEPAM [Concomitant]
     Dosage: 0.25 MG, BID
     Dates: start: 20110722
  15. REGLAN [Concomitant]
     Dosage: UNK UKN, QHS
     Route: 048
     Dates: start: 20110811
  16. PROTONIX [Concomitant]
     Dosage: 40 MG, QD
     Route: 048
     Dates: start: 20110811

REACTIONS (5)
  - Upper respiratory tract infection [Unknown]
  - Infective pulmonary exacerbation of cystic fibrosis [Recovered/Resolved]
  - Anxiety [Recovered/Resolved]
  - Hypoxia [Recovered/Resolved]
  - Pneumothorax [Unknown]
